FAERS Safety Report 5134214-2 (Version None)
Quarter: 2006Q4

REPORT INFORMATION
  Report Type: 
  Country: None (occurrence: None)
  Receive Date: 20061019
  Receipt Date: 20061004
  Transmission Date: 20070319
  Serious: Yes (Hospitalization)
  Sender: FDA-Public Use
  Company Number: JP200610001473

PATIENT
  Age: 70 Year
  Sex: Male

DRUGS (3)
  1. ZYPREXA [Suspect]
     Indication: DEMENTIA
     Dosage: ORAL
     Route: 048
  2. HALOPERIDOL [Concomitant]
  3. DONEPEZIL HCL [Concomitant]

REACTIONS (6)
  - AGGRESSION [None]
  - DYSPHAGIA [None]
  - INSOMNIA [None]
  - PNEUMONIA ASPIRATION [None]
  - RESTLESSNESS [None]
  - SEDATION [None]
